FAERS Safety Report 9949474 (Version 1)
Quarter: 2014Q1

REPORT INFORMATION
  Report Type: Spontaneous
  Country: US (occurrence: US)
  Receive Date: 20140304
  Receipt Date: 20140304
  Transmission Date: 20141002
  Serious: No
  Sender: FDA-Public Use
  Company Number: US-TEVA-451040USA

PATIENT
  Sex: 0

DRUGS (2)
  1. METHYLPREDNISOLONE [Suspect]
     Indication: HEADACHE
  2. LIDOCAINE [Suspect]
     Indication: HEADACHE

REACTIONS (1)
  - Injection site pain [Unknown]
